FAERS Safety Report 8184214-3 (Version None)
Quarter: 2012Q1

REPORT INFORMATION
  Report Type: 
  Country: None (occurrence: None)
  Receive Date: 20120305
  Receipt Date: 20120224
  Transmission Date: 20120608
  Serious: Yes (Hospitalization, Other)
  Sender: FDA-Public Use
  Company Number: JP-JNJFOC-20120202324

PATIENT
  Sex: Female
  Weight: 50 kg

DRUGS (11)
  1. REMICADE [Suspect]
     Route: 042
     Dates: start: 20101104
  2. METHOTREXATE [Concomitant]
     Indication: RHEUMATOID ARTHRITIS
     Route: 048
     Dates: start: 20051101
  3. REMICADE [Suspect]
     Route: 042
     Dates: start: 20110224
  4. RIMATIL [Concomitant]
     Indication: RHEUMATOID ARTHRITIS
     Route: 048
     Dates: start: 20020726
  5. REMICADE [Suspect]
     Indication: RHEUMATOID ARTHRITIS
     Route: 042
     Dates: start: 20100616
  6. LEUCOVORIN CALCIUM [Concomitant]
     Indication: RHEUMATOID ARTHRITIS
     Route: 048
  7. REMICADE [Suspect]
     Dosage: 13TH DOSE
     Route: 042
     Dates: start: 20120119
  8. REMICADE [Suspect]
     Route: 042
     Dates: start: 20110804
  9. REMICADE [Suspect]
     Route: 042
     Dates: start: 20110927
  10. REMICADE [Suspect]
     Route: 042
     Dates: start: 20100602
  11. REMICADE [Suspect]
     Route: 042
     Dates: start: 20111124

REACTIONS (8)
  - PALPITATIONS [None]
  - DYSPNOEA [None]
  - HEART RATE DECREASED [None]
  - FLUSHING [None]
  - BLOOD PRESSURE DECREASED [None]
  - INFUSION RELATED REACTION [None]
  - CHILLS [None]
  - COUGH [None]
